FAERS Safety Report 7227180-7 (Version None)
Quarter: 2011Q1

REPORT INFORMATION
  Report Type: 
  Country: None (occurrence: None)
  Receive Date: 20110114
  Receipt Date: 20110107
  Transmission Date: 20110831
  Serious: Yes (Hospitalization, Other)
  Sender: FDA-Public Use
  Company Number: US-US-EMD SERONO, INC.-7008381

PATIENT
  Sex: Female
  Weight: 140 kg

DRUGS (11)
  1. COUMADIN [Concomitant]
     Indication: PULMONARY EMBOLISM
     Dates: start: 20040101
  2. DETROL [Concomitant]
  3. REBIF [Suspect]
     Indication: MULTIPLE SCLEROSIS
     Dates: start: 20100507, end: 20100101
  4. ADVIL [Concomitant]
  5. PREDNISONE [Concomitant]
     Indication: DRUG THERAPY
  6. METFORMIN HCL [Concomitant]
  7. REBIF [Suspect]
     Route: 058
     Dates: start: 20100601, end: 20101101
  8. PREDNISONE [Concomitant]
     Indication: PREMEDICATION
  9. NEURONTIN [Concomitant]
     Indication: MULTIPLE SCLEROSIS
  10. NEXIUM [Concomitant]
     Indication: HIATUS HERNIA
     Dates: start: 20040101
  11. LASIX [Concomitant]
     Indication: LYMPHOEDEMA

REACTIONS (11)
  - TOOTH EROSION [None]
  - HYPERHIDROSIS [None]
  - DIABETES MELLITUS [None]
  - NAUSEA [None]
  - BALANCE DISORDER [None]
  - ENDOMETRIAL CANCER STAGE II [None]
  - LISTLESS [None]
  - LETHARGY [None]
  - HEADACHE [None]
  - GAIT DISTURBANCE [None]
  - INJECTION SITE HAEMATOMA [None]
